FAERS Safety Report 7705819-7 (Version None)
Quarter: 2011Q3

REPORT INFORMATION
  Report Type: 
  Country: None (occurrence: None)
  Receive Date: 20110824
  Receipt Date: 20110812
  Transmission Date: 20111222
  Serious: Yes (Hospitalization, Other)
  Sender: FDA-Public Use
  Company Number: CA-ELI_LILLY_AND_COMPANY-CA201108004230

PATIENT
  Sex: Male
  Weight: 95 kg

DRUGS (9)
  1. ZYPREXA [Suspect]
     Dosage: 10 MG, EACH EVENING
  2. ZYPREXA [Suspect]
     Indication: SCHIZOPHRENIA, PARANOID TYPE
     Dosage: 15 MG, EACH EVENING
  3. RISPERDAL [Concomitant]
  4. CITALOPRAM HYDROBROMIDE [Concomitant]
  5. LORAZEPAM [Concomitant]
  6. ZYPREXA ZYDIS [Suspect]
     Indication: SCHIZOPHRENIA, PARANOID TYPE
     Dosage: 15 MG, EACH EVENING
  7. ZYPREXA ZYDIS [Suspect]
     Dosage: 10 MG, EACH EVENING
  8. ZYPREXA [Suspect]
     Dosage: 7.5 MG, EACH EVENING
  9. LOXAPINE HCL [Concomitant]

REACTIONS (6)
  - DIABETIC KETOACIDOSIS [None]
  - BLOOD PRESSURE INCREASED [None]
  - TYPE 1 DIABETES MELLITUS [None]
  - BLOOD CREATININE INCREASED [None]
  - HYPERGLYCAEMIA [None]
  - MICROCYTOSIS [None]
